FAERS Safety Report 10667161 (Version 2)
Quarter: 2014Q4

REPORT INFORMATION
  Report Type: Spontaneous
  Country: DE (occurrence: DE)
  Receive Date: 20141222
  Receipt Date: 20141222
  Transmission Date: 20150529
  Serious: Yes (Life-Threatening, Disabling)
  Sender: FDA-Public Use
  Company Number: DE-ROCHE-1477166

PATIENT
  Age: 71 Year
  Sex: Male

DRUGS (5)
  1. FOLSAN [Concomitant]
     Active Substance: FOLIC ACID
     Indication: ANAEMIA
     Route: 048
     Dates: start: 20130801
  2. PAMIDRONIC ACID [Concomitant]
     Active Substance: PAMIDRONIC ACID
     Indication: METASTASES TO BONE
     Route: 042
     Dates: start: 20130801
  3. ERIVEDGE [Suspect]
     Active Substance: VISMODEGIB
     Route: 048
     Dates: start: 20140110, end: 20140313
  4. FERRO SANOL [Concomitant]
     Active Substance: FERROUS SULFATE\GLYCINE
     Indication: ANAEMIA
     Route: 048
     Dates: start: 20130801
  5. ERIVEDGE [Suspect]
     Active Substance: VISMODEGIB
     Indication: BASAL CELL CARCINOMA
     Route: 048
     Dates: start: 20130807, end: 20131220

REACTIONS (4)
  - Malignant neoplasm progression [Unknown]
  - Weight increased [Unknown]
  - Drug ineffective [Unknown]
  - Alopecia [Unknown]

NARRATIVE: CASE EVENT DATE: 20130807
